FAERS Safety Report 8533861 (Version 2)
Quarter: 2015Q1

REPORT INFORMATION
  Report Type: Spontaneous
  Country: US (occurrence: US)
  Receive Date: 20120427
  Receipt Date: 20150303
  Transmission Date: 20150721
  Serious: Yes (Hospitalization, Other)
  Sender: FDA-Public Use
  Company Number: US-ROCHE-1061258

PATIENT
  Age: 55 Year
  Sex: Female

DRUGS (4)
  1. FOSAMAX [Suspect]
     Active Substance: ALENDRONATE SODIUM
     Indication: OSTEOPENIA
     Route: 048
     Dates: start: 20050831, end: 20080731
  2. FOSAMAX [Suspect]
     Active Substance: ALENDRONATE SODIUM
     Indication: OSTEOPOROSIS
     Route: 048
     Dates: start: 2003, end: 2011
  3. BONIVA [Suspect]
     Active Substance: IBANDRONATE SODIUM
     Indication: OSTEOPOROSIS
     Route: 048
     Dates: start: 2008, end: 2011
  4. BONIVA [Suspect]
     Active Substance: IBANDRONATE SODIUM
     Route: 048
     Dates: start: 20080801, end: 20090831

REACTIONS (6)
  - Femur fracture [Unknown]
  - Emotional distress [Unknown]
  - Low turnover osteopathy [Unknown]
  - Anxiety [Unknown]
  - Wrist fracture [Unknown]
  - Depression [Unknown]

NARRATIVE: CASE EVENT DATE: 20100510
